FAERS Safety Report 6603690-8 (Version None)
Quarter: 2010Q1

REPORT INFORMATION
  Report Type: 
  Country: None (occurrence: None)
  Receive Date: 20100226
  Receipt Date: 20100217
  Transmission Date: 20100710
  Serious: Yes (Hospitalization, Disabling)
  Sender: FDA-Public Use
  Company Number: GB-WYE-G04747209

PATIENT
  Age: 80 Year
  Sex: Male
  Weight: 80 kg

DRUGS (34)
  1. LANSOPRAZOLE [Suspect]
     Dosage: UNKNOWN
     Dates: start: 20060725, end: 20060808
  2. RABEPRAZOLE SODIUM [Suspect]
     Dosage: UNKNOWN
  3. PANTOPRAZOLE [Suspect]
     Indication: GASTROOESOPHAGEAL REFLUX DISEASE
     Dosage: UNKNOWN
  4. LOSEC [Suspect]
     Indication: GASTROOESOPHAGEAL REFLUX DISEASE
     Dosage: 40MG, FREQUENCY UNKNOWN
     Route: 048
     Dates: start: 20020101, end: 20060501
  5. LOSEC [Suspect]
     Dosage: UNKNOWN
     Route: 048
     Dates: start: 20060601
  6. OMEPRAZOLE [Suspect]
     Dosage: UNKNOWN
     Route: 042
     Dates: start: 20050517, end: 20050527
  7. OMEPRAZOLE [Suspect]
     Dosage: UNKNOWN
     Route: 042
     Dates: start: 20050505
  8. OMEPRAZOLE [Suspect]
     Dosage: UNKNOWN
     Route: 042
     Dates: start: 20050601
  9. OMEPRAZOLE [Suspect]
     Dosage: UNKNOWN
     Route: 042
     Dates: start: 20050618
  10. OMEPRAZOLE [Suspect]
     Dosage: UNKNOWN
     Route: 042
     Dates: start: 20050630
  11. OMEPRAZOLE [Suspect]
     Dosage: UNKNOWN
     Route: 042
     Dates: start: 20050714
  12. OMEPRAZOLE [Suspect]
     Dosage: UNKNOWN
     Route: 042
     Dates: start: 20050730
  13. OMEPRAZOLE [Suspect]
     Dosage: UNKNOWN
     Route: 042
     Dates: start: 20050811
  14. OMEPRAZOLE [Suspect]
     Dosage: UNKNOWN
     Route: 042
     Dates: start: 20050819
  15. OMEPRAZOLE [Suspect]
     Dosage: UNKNOWN
     Route: 042
     Dates: start: 20050827
  16. OMEPRAZOLE [Suspect]
     Dosage: UNKNOWN
     Route: 042
     Dates: start: 20050910
  17. OMEPRAZOLE [Suspect]
     Dosage: UNKNOWN
     Route: 042
     Dates: start: 20050920
  18. OMEPRAZOLE [Suspect]
     Dosage: UNKNOWN
     Route: 042
     Dates: start: 20051009
  19. OMEPRAZOLE [Suspect]
     Dosage: UNKNOWN
     Route: 042
     Dates: start: 20051105
  20. OMEPRAZOLE [Suspect]
     Dosage: UNKNOWN
     Route: 042
     Dates: start: 20051115
  21. OMEPRAZOLE [Suspect]
     Dosage: UNKNOWN
     Route: 042
     Dates: start: 20051129
  22. OMEPRAZOLE [Suspect]
     Dosage: UNKNOWN
     Route: 042
     Dates: start: 20051213
  23. OMEPRAZOLE [Suspect]
     Dosage: UNKNOWN
     Route: 042
     Dates: start: 20060113
  24. OMEPRAZOLE [Suspect]
     Dosage: UNKNOWN
     Route: 042
     Dates: start: 20060209
  25. OMEPRAZOLE [Suspect]
     Dosage: UNKNOWN
     Route: 042
     Dates: start: 20060223
  26. OMEPRAZOLE [Suspect]
     Dosage: UNKNOWN
     Route: 042
     Dates: start: 20060313
  27. OMEPRAZOLE [Suspect]
     Dosage: UNKNOWN
     Route: 042
     Dates: start: 20060328
  28. OMEPRAZOLE [Suspect]
     Dosage: UNKNOWN
     Route: 042
     Dates: start: 20060411
  29. OMEPRAZOLE [Suspect]
     Dosage: UNKNOWN
     Route: 042
     Dates: start: 20060501
  30. OMEPRAZOLE [Suspect]
     Dosage: UNKNOWN
     Route: 042
     Dates: start: 20060509, end: 20060527
  31. OMEPRAZOLE [Suspect]
     Dosage: UNKNOWN
     Route: 042
     Dates: start: 20060617, end: 20060617
  32. OMEPRAZOLE [Suspect]
     Dosage: UNKNOWN
     Route: 042
     Dates: start: 20051018
  33. OMEPRAZOLE [Suspect]
     Dosage: UNKNOWN
     Route: 042
     Dates: start: 20060527
  34. OMEPRAZOLE [Suspect]
     Dosage: UNKNOWN
     Route: 042
     Dates: start: 20051228

REACTIONS (2)
  - HYPOCALCAEMIA [None]
  - HYPOMAGNESAEMIA [None]
